FAERS Safety Report 4771971-9 (Version None)
Quarter: 2005Q3

REPORT INFORMATION
  Report Type: 
  Country: None (occurrence: None)
  Receive Date: 20050916
  Receipt Date: 20050907
  Transmission Date: 20060218
  Serious: Yes (Hospitalization)
  Sender: FDA-Public Use
  Company Number: PHHO2005JP14060

PATIENT
  Age: 73 Year
  Sex: Female

DRUGS (10)
  1. DIOVAN [Suspect]
     Indication: HYPERTENSION
     Dosage: 80 MG, QD
     Route: 048
     Dates: start: 20030527, end: 20050216
  2. BUFFERIN [Concomitant]
  3. GASTER [Concomitant]
  4. ALDACTONE [Concomitant]
  5. ISOSORBIDE MONONITRATE [Concomitant]
  6. SIGMART [Concomitant]
  7. NICARDIPINE HCL [Concomitant]
  8. SELOKEN [Concomitant]
  9. WARFARIN SODIUM [Concomitant]
  10. AMLODIN [Concomitant]

REACTIONS (4)
  - BRADYCARDIA [None]
  - LOSS OF CONSCIOUSNESS [None]
  - SICK SINUS SYNDROME [None]
  - SYNCOPE [None]
